FAERS Safety Report 7058822-7 (Version None)
Quarter: 2010Q4

REPORT INFORMATION
  Report Type: 
  Country: None (occurrence: None)
  Receive Date: 20101022
  Receipt Date: 20101008
  Transmission Date: 20110411
  Serious: Yes (Congenital Anomaly)
  Sender: FDA-Public Use
  Company Number: NL-ELI_LILLY_AND_COMPANY-NL201008008451

PATIENT

DRUGS (6)
  1. PROZAC [Suspect]
     Dosage: 20 MG, DAILY (1/D)
     Route: 064
  2. FOLIC ACID [Concomitant]
     Route: 064
  3. COTRIMOXAZOL FORTE [Concomitant]
     Route: 064
  4. AMOXICILLINE                       /00249602/ [Concomitant]
     Route: 064
  5. PARACETAMOL [Concomitant]
     Route: 064
  6. FERROFUMARAAT [Concomitant]
     Route: 064

REACTIONS (2)
  - DRUG EXPOSURE DURING PREGNANCY [None]
  - PULMONARY VALVE STENOSIS [None]
